FAERS Safety Report 21914610 (Version 1)
Quarter: 2023Q1

REPORT INFORMATION
  Report Type: Spontaneous
  Country: US (occurrence: US)
  Receive Date: 20230126
  Receipt Date: 20230126
  Transmission Date: 20230418
  Serious: No
  Sender: FDA-Public Use
  Company Number: US-SANOFI-01455184

PATIENT
  Age: 86 Year
  Sex: Female

DRUGS (5)
  1. DUPIXENT [Suspect]
     Active Substance: DUPILUMAB
     Indication: Dermatitis atopic
     Dosage: 300 MG, QOW
     Route: 058
  2. SULFAMETHOPRIM [Suspect]
     Active Substance: SULFAMETHOXAZOLE
     Dosage: UNK
  3. BACTRIM DS [Concomitant]
     Active Substance: SULFAMETHOXAZOLE\TRIMETHOPRIM
  4. FLUCONAZOLE [Concomitant]
     Active Substance: FLUCONAZOLE
  5. OMEPRAZOLE [Concomitant]
     Active Substance: OMEPRAZOLE

REACTIONS (4)
  - Bowel movement irregularity [Unknown]
  - Dyspepsia [Unknown]
  - Vaginal infection [Unknown]
  - Hunger [Unknown]

NARRATIVE: CASE EVENT DATE: 20230118
